FAERS Safety Report 15945763 (Version 1)
Quarter: 2019Q1

REPORT INFORMATION
  Report Type: Spontaneous
  Country: US (occurrence: US)
  Receive Date: 20190119
  Receipt Date: 20190119
  Transmission Date: 20190417
  Serious: No
  Sender: FDA-Public Use
  Company Number: None

PATIENT
  Age: 66 Year
  Sex: Male
  Weight: 220.46 kg

DRUGS (2)
  1. LEUPROLIDE [Suspect]
     Active Substance: LEUPROLIDE
     Dosage: ?          OTHER DOSE:22.5MG;?
     Dates: end: 20181031
  2. CASODEX [Suspect]
     Active Substance: BICALUTAMIDE
     Dates: end: 20190102

REACTIONS (3)
  - Pneumonia bacterial [None]
  - Respiratory failure [None]
  - Respiratory syncytial virus test positive [None]

NARRATIVE: CASE EVENT DATE: 20190102
